FAERS Safety Report 21973949 (Version 2)
Quarter: 2023Q1

REPORT INFORMATION
  Report Type: Spontaneous
  Country: LY (occurrence: None)
  Receive Date: 20230209
  Receipt Date: 20230217
  Transmission Date: 20230418
  Serious: Yes (Death, Hospitalization)
  Sender: FDA-Public Use
  Company Number: LY-ROCHE-3281480

PATIENT
  Age: 10 Year
  Sex: Male

DRUGS (1)
  1. RISDIPLAM [Suspect]
     Active Substance: RISDIPLAM
     Indication: Product used for unknown indication
     Route: 065
     Dates: start: 20230129

REACTIONS (4)
  - Cardiac arrest [Fatal]
  - Loss of consciousness [Unknown]
  - Hypoxia [Unknown]
  - Pain [Unknown]
